FAERS Safety Report 15727961 (Version 3)
Quarter: 2019Q1

REPORT INFORMATION
  Report Type: Report from Study
  Country: None (occurrence: US)
  Receive Date: 20181217
  Receipt Date: 20190302
  Transmission Date: 20190417
  Serious: Yes (Hospitalization, Other)
  Sender: FDA-Public Use
  Company Number: US-ABBVIE-18K-163-2540683-00

PATIENT
  Age: 11 Year
  Sex: Female

DRUGS (4)
  1. HUMIRA [Suspect]
     Active Substance: ADALIMUMAB
     Dosage: DAY 15
     Route: 058
     Dates: start: 20181023, end: 20181023
  2. HUMIRA [Suspect]
     Active Substance: ADALIMUMAB
     Indication: CROHN^S DISEASE
     Dosage: DAY1
     Route: 058
     Dates: start: 20181009, end: 20181009
  3. HUMIRA [Suspect]
     Active Substance: ADALIMUMAB
     Route: 058
  4. HUMIRA [Suspect]
     Active Substance: ADALIMUMAB
     Dosage: DAY 29
     Route: 058
     Dates: start: 20181106

REACTIONS (18)
  - Abdominal adhesions [Unknown]
  - Malaise [Recovered/Resolved]
  - Loss of personal independence in daily activities [Recovering/Resolving]
  - Fear [Recovering/Resolving]
  - Injection site erythema [Unknown]
  - Nausea [Recovered/Resolved]
  - Insomnia [Recovering/Resolving]
  - Injection site pain [Unknown]
  - Abdominal pain [Recovering/Resolving]
  - Crohn^s disease [Unknown]
  - Vomiting [Recovered/Resolved]
  - Diarrhoea [Unknown]
  - Drug ineffective [Unknown]
  - Hospitalisation [Unknown]
  - Diarrhoea [Recovered/Resolved]
  - Anxiety [Unknown]
  - Postoperative wound infection [Unknown]
  - Malaise [Unknown]

NARRATIVE: CASE EVENT DATE: 2018
